FAERS Safety Report 9365229 (Version 2)
Quarter: 2013Q3

REPORT INFORMATION
  Report Type: Spontaneous
  Country: FR (occurrence: FR)
  Receive Date: 20130624
  Receipt Date: 20130708
  Transmission Date: 20140515
  Serious: Yes (Other)
  Sender: FDA-Public Use
  Company Number: FR-BRISTOL-MYERS SQUIBB COMPANY-18946418

PATIENT
  Age: 74 Year
  Sex: Male
  Weight: 75 kg

DRUGS (6)
  1. YERVOY [Suspect]
     Indication: MALIGNANT MELANOMA
     Dosage: 18MAY2014
     Route: 042
     Dates: start: 20130405
  2. DIGOXIN [Concomitant]
     Dosage: 1DF: HALF TAB;
     Route: 048
     Dates: start: 20130520
  3. FUROSEMIDE [Concomitant]
     Route: 048
     Dates: start: 20130507
  4. KARDEGIC [Concomitant]
     Route: 048
  5. KARDEGIC [Concomitant]
     Dosage: 10 YEARS
     Route: 048
  6. OLMESARTAN MEDOXOMIL [Concomitant]

REACTIONS (4)
  - Myocarditis [Recovering/Resolving]
  - Generalised oedema [Recovering/Resolving]
  - Pulmonary hypertension [Recovering/Resolving]
  - Pleural effusion [Unknown]
